FAERS Safety Report 26016561 (Version 4)
Quarter: 2025Q4

REPORT INFORMATION
  Report Type: Spontaneous
  Country: US (occurrence: US)
  Receive Date: 20251110
  Receipt Date: 20251114
  Transmission Date: 20260117
  Serious: Yes (Other)
  Sender: SANDOZ
  Company Number: US-SANDOZ-SDZ2025US082168

PATIENT
  Sex: Male

DRUGS (1)
  1. ALBUTEROL SULFATE [Suspect]
     Active Substance: ALBUTEROL SULFATE
     Indication: Product used for unknown indication
     Dosage: 90 MCG/DOS, 200 DOS, WHEN NEEDED, MAYBE 2-3 TIMES A DAY DURING AN ACTIVE ALLERGIES ATTACK PERIOD
     Route: 055
     Dates: start: 20251029

REACTIONS (4)
  - Asthma [Unknown]
  - Circumstance or information capable of leading to medication error [Unknown]
  - Device defective [Unknown]
  - Device mechanical issue [Unknown]
